FAERS Safety Report 15737558 (Version 1)
Quarter: 2018Q4

REPORT INFORMATION
  Report Type: Spontaneous
  Country: IN (occurrence: IN)
  Receive Date: 20181219
  Receipt Date: 20181219
  Transmission Date: 20190205
  Serious: Yes (Life-Threatening, Other)
  Sender: FDA-Public Use
  Company Number: IN-ACCORD-096536

PATIENT
  Age: 16 Year
  Sex: Male

DRUGS (7)
  1. METHOTREXATE. [Suspect]
     Active Substance: METHOTREXATE
     Indication: T-CELL TYPE ACUTE LEUKAEMIA
     Dosage: HE ATTAINED MARROW REMISSION AFTER CYCLE IA AND WAS CONTINUED TILL IV B
     Route: 048
  2. CYTARABINE/CYTARABINE HYDROCHLORIDE/CYTARABINE OCFOSFATE [Suspect]
     Active Substance: CYTARABINE
     Indication: T-CELL TYPE ACUTE LEUKAEMIA
     Dosage: HE ATTAINED MARROW REMISSION AFTER CYCLE IA AND WAS CONTINUED TILL IV B
  3. DEXAMETHASONE. [Suspect]
     Active Substance: DEXAMETHASONE
     Indication: T-CELL TYPE ACUTE LEUKAEMIA
     Dosage: HE ATTAINED MARROW REMISSION AFTER CYCLE IA AND WAS CONTINUED TILL IV B
  4. CYCLOPHOSPHAMIDE/CYCLOPHOSPHAMIDE MONOHYDRATE [Suspect]
     Active Substance: CYCLOPHOSPHAMIDE
     Indication: T-CELL TYPE ACUTE LEUKAEMIA
     Dosage: HE ATTAINED MARROW REMISSION AFTER CYCLE IA AND WAS CONTINUED TILL IV B
  5. DOXORUBICIN [Suspect]
     Active Substance: DOXORUBICIN
     Indication: T-CELL TYPE ACUTE LEUKAEMIA
     Dosage: HE ATTAINED MARROW REMISSION AFTER CYCLE IA AND WAS CONTINUED TILL IV B
  6. MERCAPTOPURINE/MERCAPTOPURINE ANHYDROUS [Suspect]
     Active Substance: MERCAPTOPURINE
     Indication: T-CELL TYPE ACUTE LEUKAEMIA
     Route: 048
  7. VINCRISTINE [Suspect]
     Active Substance: VINCRISTINE
     Indication: T-CELL TYPE ACUTE LEUKAEMIA
     Dosage: HE ATTAINED MARROW REMISSION AFTER CYCLE IA AND WAS CONTINUED TILL IV B

REACTIONS (1)
  - Cytomegalovirus chorioretinitis [Recovering/Resolving]
